FAERS Safety Report 4624080-3 (Version None)
Quarter: 2005Q1

REPORT INFORMATION
  Report Type: 
  Country: None (occurrence: None)
  Receive Date: 20050331
  Receipt Date: 20050321
  Transmission Date: 20050727
  Serious: Yes (Other)
  Sender: FDA-Public Use
  Company Number: US-GLAXOSMITHKLINE-A0545530B

PATIENT
  Age: 81 Year
  Sex: Female
  Weight: 80 kg

DRUGS (12)
  1. TOSITUMOMAB [Suspect]
     Indication: NON-HODGKIN'S LYMPHOMA
     Dosage: 450MG SINGLE DOSE
     Route: 042
     Dates: start: 20000224, end: 20000224
  2. IODINE I 131 TOSITUMOMAB [Suspect]
     Indication: NON-HODGKIN'S LYMPHOMA
     Dosage: 5.2MCI SINGLE DOSE
     Route: 042
     Dates: start: 20000224, end: 20000224
  3. TOSITUMOMAB [Suspect]
     Dosage: 450MG SINGLE DOSE
     Route: 042
     Dates: start: 20000302, end: 20000302
  4. IODINE I 131 TOSITUMOMAB [Suspect]
     Dosage: 98.8MCI SINGLE DOSE
     Route: 042
     Dates: start: 20000302, end: 20000302
  5. ALDOMET [Concomitant]
  6. SYNTHROID [Concomitant]
  7. WARFARIN SODIUM [Concomitant]
  8. WELLBUTRIN [Concomitant]
  9. MEGACE [Concomitant]
  10. CALCIUM GLUCONATE [Concomitant]
  11. MULTI-VITAMIN [Concomitant]
  12. FOLIC ACID [Concomitant]

REACTIONS (5)
  - ARTHRALGIA [None]
  - DECREASED APPETITE [None]
  - HODGKIN'S DISEASE [None]
  - PAIN IN EXTREMITY [None]
  - WEIGHT DECREASED [None]
